FAERS Safety Report 16893985 (Version 2)
Quarter: 2020Q4

REPORT INFORMATION
  Report Type: Spontaneous
  Country: BR (occurrence: BR)
  Receive Date: 20191008
  Receipt Date: 20201116
  Transmission Date: 20210113
  Serious: Yes (Other)
  Sender: FDA-Public Use
  Company Number: JP-SUNOVION-2019SUN004020

PATIENT
  Sex: Male
  Weight: 80 kg

DRUGS (3)
  1. LATUDA [Suspect]
     Active Substance: LURASIDONE HYDROCHLORIDE
     Indication: BORDERLINE PERSONALITY DISORDER
     Dosage: 20 MG, QD
     Route: 048
     Dates: start: 2019, end: 2019
  2. LATUDA [Suspect]
     Active Substance: LURASIDONE HYDROCHLORIDE
     Indication: BIPOLAR I DISORDER
     Dosage: 40 MG, QD
     Route: 048
     Dates: start: 2019, end: 2019
  3. LATUDA [Suspect]
     Active Substance: LURASIDONE HYDROCHLORIDE
     Dosage: 20 MG, QD
     Route: 048
     Dates: start: 2019, end: 2019

REACTIONS (14)
  - Psychotic disorder [Unknown]
  - Thinking abnormal [Unknown]
  - Abnormal dreams [Unknown]
  - Product use in unapproved indication [Recovered/Resolved]
  - Fear [Not Recovered/Not Resolved]
  - Memory impairment [Unknown]
  - Feeling abnormal [Unknown]
  - Off label use [Recovered/Resolved]
  - Skin discomfort [Unknown]
  - Dyspnoea [Recovered/Resolved]
  - Homicidal ideation [Unknown]
  - Depression [Not Recovered/Not Resolved]
  - Asphyxia [Recovered/Resolved]
  - Chest pain [Recovered/Resolved]

NARRATIVE: CASE EVENT DATE: 2019
